FAERS Safety Report 8161459-X (Version None)
Quarter: 2012Q1

REPORT INFORMATION
  Report Type: 
  Country: None (occurrence: None)
  Receive Date: 20120224
  Receipt Date: 20120216
  Transmission Date: 20120608
  Serious: Yes (Hospitalization)
  Sender: FDA-Public Use
  Company Number: US-BAYER-201039206NA

PATIENT
  Age: 30 Year
  Sex: Female
  Weight: 63 kg

DRUGS (4)
  1. YASMIN [Suspect]
     Indication: CONTRACEPTION
     Dosage: UNK
     Dates: start: 20050401, end: 20090901
  2. PRILOSEC [Concomitant]
     Indication: GASTRIC DISORDER
     Dosage: UNK UNK, QD
     Route: 048
  3. DROSPIRENONE AND ETHINYL ESTRADIOL [Suspect]
     Indication: CONTRACEPTION
     Dosage: UNK
     Dates: start: 20050401, end: 20090901
  4. DICYCLOMINE [Concomitant]
     Dosage: 20 MG, QD
     Route: 048

REACTIONS (5)
  - CHOLECYSTITIS CHRONIC [None]
  - ABDOMINAL PAIN LOWER [None]
  - CHOLELITHIASIS [None]
  - PAIN [None]
  - FATIGUE [None]
